FAERS Safety Report 7344424-1 (Version None)
Quarter: 2011Q1

REPORT INFORMATION
  Report Type: 
  Country: None (occurrence: None)
  Receive Date: 20110310
  Receipt Date: 20101122
  Transmission Date: 20110831
  Serious: No
  Sender: FDA-Public Use
  Company Number: A0894494A

PATIENT
  Age: 29 Year
  Sex: Female

DRUGS (3)
  1. NICORETTE [Suspect]
  2. NICODERM CQ [Suspect]
     Dates: start: 20100414, end: 20100417
  3. NICORETTE [Suspect]
     Dates: start: 20101122, end: 20101122

REACTIONS (5)
  - FEELING ABNORMAL [None]
  - DIZZINESS [None]
  - DYSPEPSIA [None]
  - OROPHARYNGEAL DISCOMFORT [None]
  - HYPERSENSITIVITY [None]
